FAERS Safety Report 10952874 (Version 3)
Quarter: 2015Q2

REPORT INFORMATION
  Report Type: Spontaneous
  Country: US (occurrence: None)
  Receive Date: 20150323
  Receipt Date: 20150420
  Transmission Date: 20150821
  Serious: Yes (Other)
  Sender: FDA-Public Use
  Company Number: 2015AKN00145

PATIENT
  Age: 16 Year
  Sex: Male
  Weight: 52.2 kg

DRUGS (2)
  1. MYORISAN [Suspect]
     Active Substance: ISOTRETINOIN
     Indication: ACNE
     Dates: start: 20150213, end: 2015
  2. ZENATANE [Suspect]
     Active Substance: ISOTRETINOIN
     Indication: ACNE
     Route: 048
     Dates: start: 20150119, end: 20150212

REACTIONS (6)
  - Aggression [None]
  - Weight decreased [None]
  - Depression [None]
  - Insomnia [None]
  - Crying [None]
  - Homicidal ideation [None]

NARRATIVE: CASE EVENT DATE: 20150307
